FAERS Safety Report 9120078 (Version 4)
Quarter: 2013Q2

REPORT INFORMATION
  Report Type: Spontaneous
  Country: US (occurrence: US)
  Receive Date: 20130226
  Receipt Date: 20130430
  Transmission Date: 20140414
  Serious: Yes (Hospitalization)
  Sender: FDA-Public Use
  Company Number: US-ELI_LILLY_AND_COMPANY-US201302006209

PATIENT
  Age: 57 Year
  Sex: Female
  Weight: 64.4 kg

DRUGS (10)
  1. FORTEO [Suspect]
     Indication: OSTEOPOROSIS
     Dosage: 20 UG, QD
     Dates: start: 201209
  2. FORTEO [Suspect]
     Dosage: 20 UG, QOD
     Dates: start: 20130215
  3. ADVAIR [Concomitant]
  4. ALPRAZOLAM [Concomitant]
  5. CRESTOR [Concomitant]
  6. PROTONIX [Concomitant]
  7. ZOLOFT [Concomitant]
  8. DILANTIN [Concomitant]
  9. MIRALAX [Concomitant]
     Dosage: UNK
  10. PERCOCET [Concomitant]
     Dosage: UNK

REACTIONS (7)
  - Chronic obstructive pulmonary disease [Recovered/Resolved]
  - Iron deficiency anaemia [Recovering/Resolving]
  - Nausea [Unknown]
  - Vomiting [Unknown]
  - Dizziness [Not Recovered/Not Resolved]
  - Inappropriate schedule of drug administration [Unknown]
  - Malaise [Unknown]
